FAERS Safety Report 8348350-0 (Version None)
Quarter: 2012Q2

REPORT INFORMATION
  Report Type: 
  Country: None (occurrence: None)
  Receive Date: 20120509
  Receipt Date: 20120503
  Transmission Date: 20120825
  Serious: Yes (Hospitalization, Other)
  Sender: FDA-Public Use
  Company Number: AR-ROCHE-GNE324762

PATIENT
  Sex: Female

DRUGS (3)
  1. LUCENTIS [Suspect]
     Route: 050
  2. LUCENTIS [Suspect]
     Route: 050
  3. LUCENTIS [Suspect]
     Indication: MACULOPATHY
     Dosage: 1 DF, 1/MONTH
     Route: 050
     Dates: start: 20110401

REACTIONS (7)
  - DRUG INEFFECTIVE [None]
  - SCOTOMA [None]
  - VISUAL IMPAIRMENT [None]
  - THROMBOSIS [None]
  - BLOOD PRESSURE INCREASED [None]
  - VISION BLURRED [None]
  - URINARY TRACT INFECTION [None]
